FAERS Safety Report 4844148-6 (Version None)
Quarter: 2005Q4

REPORT INFORMATION
  Report Type: 
  Country: None (occurrence: None)
  Receive Date: 20051202
  Receipt Date: 20051021
  Transmission Date: 20060501
  Serious: Yes (Other)
  Sender: FDA-Public Use
  Company Number: US-AMGEN-US155425

PATIENT
  Sex: Female

DRUGS (12)
  1. ENBREL [Suspect]
     Indication: RHEUMATOID ARTHRITIS
     Route: 058
     Dates: start: 20021028, end: 20051010
  2. PREDNISONE [Suspect]
     Route: 048
     Dates: start: 19980401
  3. RIDAURA [Suspect]
     Route: 048
     Dates: start: 20021001
  4. METHOTREXATE [Concomitant]
  5. PLAQUENIL [Concomitant]
  6. FOSAMAX [Concomitant]
     Dates: start: 19971001
  7. TYLENOL [Concomitant]
  8. GINGKO BILOBA [Concomitant]
  9. DETROL [Concomitant]
  10. DARVOCET-N 100 [Concomitant]
  11. TUMS [Concomitant]
  12. MULTI-VITAMINS [Concomitant]

REACTIONS (3)
  - CENTRAL NERVOUS SYSTEM LESION [None]
  - CONCUSSION [None]
  - FALL [None]
